FAERS Safety Report 8513950-1 (Version None)
Quarter: 2012Q3

REPORT INFORMATION
  Report Type: 
  Country: None (occurrence: None)
  Receive Date: 20120717
  Receipt Date: 20120713
  Transmission Date: 20120928
  Serious: Yes (Life-Threatening)
  Sender: FDA-Public Use
  Company Number: IN-B.I. PHARMACEUTICALS,INC./RIDGEFIELD-2012-CS-01009IG

PATIENT
  Age: 72 Year
  Sex: Male
  Weight: 64 kg

DRUGS (3)
  1. HEPARIN [Concomitant]
  2. METALYSE [Suspect]
     Indication: ACUTE MYOCARDIAL INFARCTION
     Dosage: 0.5 MG / KG
     Route: 042
     Dates: start: 20120617, end: 20120617
  3. ANTIPLATELETS [Concomitant]

REACTIONS (2)
  - VENTRICULAR FIBRILLATION [None]
  - DRUG INEFFECTIVE [None]
